FAERS Safety Report 18999692 (Version 1)
Quarter: 2021Q1

REPORT INFORMATION
  Report Type: Spontaneous
  Country: JP (occurrence: JP)
  Receive Date: 20210311
  Receipt Date: 20210311
  Transmission Date: 20210420
  Serious: Yes (Death, Other)
  Sender: FDA-Public Use
  Company Number: JP-INCYTE CORPORATION-2021IN001832

PATIENT

DRUGS (1)
  1. JAKAVI [Suspect]
     Active Substance: RUXOLITINIB
     Indication: MYELOFIBROSIS
     Dosage: UNK
     Route: 048
     Dates: start: 20170125, end: 201907

REACTIONS (4)
  - Organising pneumonia [Unknown]
  - Pneumonia bacterial [Unknown]
  - Pulmonary alveolar haemorrhage [Fatal]
  - Interstitial lung disease [Unknown]

NARRATIVE: CASE EVENT DATE: 2019
